FAERS Safety Report 8181173-4 (Version None)
Quarter: 2012Q1

REPORT INFORMATION
  Report Type: 
  Country: None (occurrence: None)
  Receive Date: 20120302
  Receipt Date: 20120228
  Transmission Date: 20120608
  Serious: Yes (Other)
  Sender: FDA-Public Use
  Company Number: US-GLAXOSMITHKLINE-A0967881A

PATIENT
  Age: 40 Year
  Sex: Female

DRUGS (5)
  1. ADVAIR DISKUS 100/50 [Suspect]
     Indication: ASTHMA
     Dosage: 1PUFF TWICE PER DAY
     Route: 055
     Dates: start: 20100101, end: 20120225
  2. VALIUM [Concomitant]
  3. VENTOLIN HFA [Concomitant]
  4. ZOLOFT [Concomitant]
  5. HORMONE PATCH [Concomitant]

REACTIONS (5)
  - ASTHMA [None]
  - DYSPNOEA [None]
  - MYOCARDIAL INFARCTION [None]
  - CHEST DISCOMFORT [None]
  - PRODUCT QUALITY ISSUE [None]
